FAERS Safety Report 4849476-6 (Version None)
Quarter: 2005Q4

REPORT INFORMATION
  Report Type: 
  Country: None (occurrence: None)
  Receive Date: 20051207
  Receipt Date: 20051124
  Transmission Date: 20060501
  Serious: Yes (Other)
  Sender: FDA-Public Use
  Company Number: 2005160579

PATIENT
  Age: 53 Year
  Sex: Female

DRUGS (2)
  1. CELEBREX [Suspect]
     Indication: MUSCULOSKELETAL PAIN
     Dosage: 600 MG (200 MG, 3 IN 1 D), ORAL
     Route: 048
     Dates: end: 20051106
  2. CELEBREX [Suspect]
     Indication: NODAL OSTEOARTHRITIS
     Dosage: 600 MG (200 MG, 3 IN 1 D), ORAL
     Route: 048
     Dates: end: 20051106

REACTIONS (4)
  - BLOOD CHOLESTEROL INCREASED [None]
  - SENSORY LOSS [None]
  - VISUAL ACUITY REDUCED [None]
  - VISUAL FIELD DEFECT [None]
